FAERS Safety Report 20936531 (Version 2)
Quarter: 2022Q2

REPORT INFORMATION
  Report Type: Spontaneous
  Country: FR (occurrence: FR)
  Receive Date: 20220609
  Receipt Date: 20220629
  Transmission Date: 20220721
  Serious: Yes (Other)
  Sender: FDA-Public Use
  Company Number: None

PATIENT
  Age: 32 Year
  Sex: Male

DRUGS (4)
  1. MIRTAZAPINE [Suspect]
     Active Substance: MIRTAZAPINE
     Indication: Product used for unknown indication
     Dosage: 15 MG/D EVENING BUT HAS OVERCONSUMED HIS TREATMENT, THERAPY START DATE NASK, THERAPY END DATE NASK
     Route: 048
  2. DIAZEPAM [Suspect]
     Active Substance: DIAZEPAM
     Indication: Product used for unknown indication
     Dosage: 5MG 1CPX3/D BUT OVERCONSUMPTION OF HIS TREATMENT, THERAPY START DATE NASK, THERAPY END DATE NASK
     Route: 048
  3. CYAMEMAZINE [Suspect]
     Active Substance: CYAMEMAZINE
     Indication: Product used for unknown indication
     Dosage: 100MG/D AT BEDTIME BUT OVERCONSUMPTION OF HIS TREATMENT, THERAPY START DATE NASK, THERAPY END DATE N
     Route: 048
  4. TRIMEPRAZINE [Suspect]
     Active Substance: TRIMEPRAZINE
     Indication: Product used for unknown indication
     Dosage: 5MG X 3TAB/D AT BEDTIME BUT OVERCONSUMES HIS TREATMENT,THERAPY START DATE NASK, THERAPY END DATE NAS
     Route: 048

REACTIONS (4)
  - Suicidal ideation [Recovering/Resolving]
  - Drug abuse [Recovered/Resolved]
  - Insomnia [Recovering/Resolving]
  - Anxiety [Recovering/Resolving]

NARRATIVE: CASE EVENT DATE: 20220301
